FAERS Safety Report 16114540 (Version 2)
Quarter: 2019Q2

REPORT INFORMATION
  Report Type: Spontaneous
  Country: US (occurrence: US)
  Receive Date: 20190325
  Receipt Date: 20190422
  Transmission Date: 20190711
  Serious: Yes (Other)
  Sender: FDA-Public Use
  Company Number: US-ASTRAZENECA-2019SE43786

PATIENT
  Age: 22246 Day
  Sex: Female

DRUGS (24)
  1. ARANESP [Concomitant]
     Active Substance: DARBEPOETIN ALFA
  2. PRAVACHOL [Concomitant]
     Active Substance: PRAVASTATIN SODIUM
  3. MIDODRINE [Concomitant]
     Active Substance: MIDODRINE
  4. GABAPENTIN. [Concomitant]
     Active Substance: GABAPENTIN
  5. CELEBREX [Concomitant]
     Active Substance: CELECOXIB
  6. LEVAQUIN [Concomitant]
     Active Substance: LEVOFLOXACIN
  7. LIPITOR [Concomitant]
     Active Substance: ATORVASTATIN CALCIUM
  8. PRILOSEC [Suspect]
     Active Substance: OMEPRAZOLE MAGNESIUM
     Indication: ULCER
     Dosage: 40.0MG UNKNOWN
     Route: 048
     Dates: start: 201610
  9. PREVACID [Suspect]
     Active Substance: LANSOPRAZOLE
     Indication: GASTROOESOPHAGEAL REFLUX DISEASE
     Dosage: 40.0MG UNKNOWN
     Route: 065
  10. DEMADEX [Concomitant]
     Active Substance: TORSEMIDE
  11. ZANTAC [Concomitant]
     Active Substance: RANITIDINE HYDROCHLORIDE
  12. DEXILANT [Suspect]
     Active Substance: DEXLANSOPRAZOLE
     Indication: GASTROOESOPHAGEAL REFLUX DISEASE
     Dosage: 30.0MG UNKNOWN
     Route: 065
     Dates: start: 201708, end: 201804
  13. BACTRIM [Concomitant]
     Active Substance: SULFAMETHOXAZOLE\TRIMETHOPRIM
  14. PENTASA [Concomitant]
     Active Substance: MESALAMINE
  15. NEXIUM [Suspect]
     Active Substance: ESOMEPRAZOLE MAGNESIUM
     Indication: GASTROOESOPHAGEAL REFLUX DISEASE
     Route: 048
     Dates: start: 2010
  16. DEXILANT [Suspect]
     Active Substance: DEXLANSOPRAZOLE
     Indication: GASTROOESOPHAGEAL REFLUX DISEASE
     Route: 065
     Dates: start: 2010
  17. NEXIUM [Suspect]
     Active Substance: ESOMEPRAZOLE MAGNESIUM
     Indication: GASTROOESOPHAGEAL REFLUX DISEASE
     Dosage: 40.0MG UNKNOWN
     Route: 048
     Dates: start: 200510, end: 201112
  18. MOBIC [Concomitant]
     Active Substance: MELOXICAM
  19. ZESTRIL [Concomitant]
     Active Substance: LISINOPRIL
  20. CRESTOR [Concomitant]
     Active Substance: ROSUVASTATIN CALCIUM
  21. PRILOSEC [Suspect]
     Active Substance: OMEPRAZOLE MAGNESIUM
     Indication: ULCER
     Dosage: 20.0MG UNKNOWN
     Route: 048
     Dates: start: 200406, end: 2015
  22. PROTONIX [Suspect]
     Active Substance: PANTOPRAZOLE SODIUM
     Indication: GASTROOESOPHAGEAL REFLUX DISEASE
     Route: 065
     Dates: start: 2004, end: 200608
  23. ZOCOR [Concomitant]
     Active Substance: SIMVASTATIN
  24. FAMOTIDINE. [Concomitant]
     Active Substance: FAMOTIDINE

REACTIONS (6)
  - Rebound acid hypersecretion [Unknown]
  - Acute kidney injury [Unknown]
  - Gastric cancer [Unknown]
  - Renal failure [Unknown]
  - Chronic kidney disease [Unknown]
  - End stage renal disease [Unknown]

NARRATIVE: CASE EVENT DATE: 20160202
